FAERS Safety Report 22064757 (Version 1)
Quarter: 2023Q1

REPORT INFORMATION
  Report Type: Spontaneous
  Country: US (occurrence: None)
  Receive Date: 20230304
  Receipt Date: 20230304
  Transmission Date: 20230417
  Serious: Yes (Hospitalization)
  Sender: FDA-Public Use
  Company Number: None

PATIENT
  Age: 66 Year
  Sex: Male
  Weight: 108 kg

DRUGS (15)
  1. MOTEGRITY [Suspect]
     Active Substance: PRUCALOPRIDE SUCCINATE
     Indication: Constipation
     Dosage: OTHER QUANTITY : 1 TABLET(S);?FREQUENCY : DAILY;?
     Route: 048
     Dates: start: 20230221, end: 20230223
  2. AMITIZA [Concomitant]
     Active Substance: LUBIPROSTONE
  3. CONSTULOSE [Concomitant]
     Active Substance: LACTULOSE
  4. CRESTOR [Concomitant]
     Active Substance: ROSUVASTATIN CALCIUM
  5. Diazapam (Valium) [Concomitant]
  6. ELIQUIS [Concomitant]
     Active Substance: APIXABAN
  7. FLORINEF ACETATE [Concomitant]
     Active Substance: FLUDROCORTISONE ACETATE
  8. Freestyle 2 day Sensor CGM [Concomitant]
  9. OMEPRAZOLE MAGNESIUM [Concomitant]
     Active Substance: OMEPRAZOLE MAGNESIUM
  10. SUNOSI [Concomitant]
     Active Substance: SOLRIAMFETOL
  11. TRINTELLIX [Concomitant]
     Active Substance: VORTIOXETINE HYDROBROMIDE
  12. TRULICITY [Concomitant]
     Active Substance: DULAGLUTIDE
  13. VITAMIN C [Concomitant]
     Active Substance: ASCORBIC ACID
  14. Xylimelts for Dry Mouth [Concomitant]
  15. Melts Zofran (Odansetron) [Concomitant]

REACTIONS (1)
  - Suicidal ideation [None]

NARRATIVE: CASE EVENT DATE: 20230223
